FAERS Safety Report 6939560-5 (Version None)
Quarter: 2010Q3

REPORT INFORMATION
  Report Type: 
  Country: None (occurrence: None)
  Receive Date: 20100824
  Receipt Date: 20100729
  Transmission Date: 20110219
  Serious: Yes (Other)
  Sender: FDA-Public Use
  Company Number: PHHY2010US50632

PATIENT

DRUGS (1)
  1. CLOZAPINE [Suspect]
     Dosage: 150 MG/DAY

REACTIONS (2)
  - PARKINSON'S DISEASE [None]
  - TREMOR [None]
